FAERS Safety Report 16041292 (Version 1)
Quarter: 2019Q1

REPORT INFORMATION
  Report Type: Spontaneous
  Country: DE (occurrence: DE)
  Receive Date: 20190306
  Receipt Date: 20190306
  Transmission Date: 20190418
  Serious: Yes (Hospitalization, Other)
  Sender: FDA-Public Use
  Company Number: DE-AUROBINDO-AUR-APL-2019-011431

PATIENT

DRUGS (40)
  1. TRASTUZUMAB. [Suspect]
     Active Substance: TRASTUZUMAB
     Dosage: 132 MILLIGRAM, EVERY WEEK
     Route: 042
     Dates: start: 20140207
  2. IBUPROFEN. [Concomitant]
     Active Substance: IBUPROFEN
     Indication: CANCER PAIN
     Dosage: 600 MILLIGRAM
     Route: 048
     Dates: start: 20131220
  3. DOCETAXEL. [Suspect]
     Active Substance: DOCETAXEL
     Dosage: 43 MILLIGRAM/SQ. METER, EVERY WEEK
     Route: 042
     Dates: start: 20140224
  4. TRASTUZUMAB. [Suspect]
     Active Substance: TRASTUZUMAB
     Dosage: 132 MILLIGRAM, EVERY WEEK
     Route: 042
     Dates: start: 20140214
  5. TRASTUZUMAB. [Suspect]
     Active Substance: TRASTUZUMAB
     Dosage: 132 MILLIGRAM, EVERY WEEK
     Route: 042
     Dates: start: 20140224
  6. TRASTUZUMAB. [Suspect]
     Active Substance: TRASTUZUMAB
     Dosage: 132 MILLIGRAM, EVERY WEEK
     Route: 042
     Dates: start: 20140331
  7. MONO-EMBOLEX [Concomitant]
     Active Substance: CERTOPARIN SODIUM
     Indication: FACTOR V LEIDEN MUTATION
     Dosage: 1 UNK, ONCE A DAY
     Route: 058
     Dates: start: 20131220, end: 20140417
  8. DOCETAXEL. [Suspect]
     Active Substance: DOCETAXEL
     Dosage: 43 MILLIGRAM/SQ. METER, EVERY WEEK
     Route: 042
     Dates: start: 20140110
  9. DOCETAXEL. [Suspect]
     Active Substance: DOCETAXEL
     Dosage: 43 MILLIGRAM, EVERY WEEK
     Route: 042
     Dates: start: 20140117, end: 20141107
  10. TRASTUZUMAB. [Suspect]
     Active Substance: TRASTUZUMAB
     Dosage: 132 MILLIGRAM, EVERY WEEK
     Route: 042
     Dates: start: 20140102, end: 20140404
  11. TRASTUZUMAB. [Suspect]
     Active Substance: TRASTUZUMAB
     Dosage: 132 MILLIGRAM, EVERY WEEK
     Route: 042
     Dates: start: 20140310, end: 20140310
  12. PERTUZUMAB. [Suspect]
     Active Substance: PERTUZUMAB
     Dosage: 420 MILLIGRAM, EVERY 3 WEEKS
     Route: 042
     Dates: start: 20140613, end: 20141107
  13. DOCETAXEL. [Suspect]
     Active Substance: DOCETAXEL
     Indication: HER-2 POSITIVE BREAST CANCER
     Dosage: 43 MILLIGRAM/SQ. METER, EVERY WEEK
     Route: 042
     Dates: start: 20130303, end: 20140303
  14. DOCETAXEL. [Suspect]
     Active Substance: DOCETAXEL
     Dosage: 43 MILLIGRAM, EVERY WEEK
     Route: 042
     Dates: start: 20140124, end: 20140124
  15. MONO-EMBOLEX [Concomitant]
     Active Substance: CERTOPARIN SODIUM
     Indication: PROPHYLAXIS
  16. FENISTIL [Concomitant]
     Active Substance: DIMETHINDENE
     Indication: ANAPHYLAXIS PROPHYLAXIS
     Dosage: 1 DOSAGE FORM, EVERY WEEK
     Route: 042
     Dates: start: 20131227, end: 20140404
  17. DOCETAXEL. [Suspect]
     Active Substance: DOCETAXEL
     Dosage: 43 MILLIGRAM, EVERY WEEK
     Route: 042
     Dates: start: 20140224
  18. TRASTUZUMAB. [Suspect]
     Active Substance: TRASTUZUMAB
     Dosage: 132 MILLIGRAM, EVERY WEEK
     Route: 042
     Dates: start: 20140117
  19. TRASTUZUMAB. [Suspect]
     Active Substance: TRASTUZUMAB
     Dosage: 132 MILLIGRAM, EVERY WEEK
     Route: 042
     Dates: start: 20140124
  20. TRASTUZUMAB. [Suspect]
     Active Substance: TRASTUZUMAB
     Dosage: 132 MILLIGRAM, EVERY WEEK
     Route: 042
     Dates: start: 20140131
  21. KEVATRIL [Concomitant]
     Active Substance: GRANISETRON HYDROCHLORIDE
     Indication: PROPHYLAXIS OF NAUSEA AND VOMITING
     Dosage: 1.5 MILLIGRAM, EVERY WEEK
     Route: 042
     Dates: start: 20131027, end: 20140404
  22. DOCETAXEL. [Suspect]
     Active Substance: DOCETAXEL
     Dosage: 43 MILLIGRAM/SQ. METER, EVERY WEEK
     Route: 042
     Dates: start: 20140207
  23. DOCETAXEL. [Suspect]
     Active Substance: DOCETAXEL
     Dosage: 43 MILLIGRAM/SQ. METER, EVERY WEEK
     Route: 042
     Dates: start: 20140214
  24. FORTECORTIN [Concomitant]
     Active Substance: DEXAMETHASONE
     Indication: PROPHYLAXIS OF NAUSEA AND VOMITING
     Dosage: 8 MILLIGRAM, EVERY WEEK
     Route: 042
     Dates: start: 20131027, end: 20140404
  25. TILIDIN [Concomitant]
     Active Substance: NALOXONE HYDROCHLORIDE\TILIDINE HYDROCHLORIDE
     Indication: CANCER PAIN
     Dosage: 1 UNK, ONCE A DAY, 50/4 MG
     Route: 048
     Dates: start: 20131220
  26. BONDRONAT [Concomitant]
     Active Substance: IBANDRONATE SODIUM
     Indication: CANCER PAIN
     Dosage: 6 MILLIGRAM, EVERY 3 MINUTES
     Route: 042
     Dates: start: 20140303
  27. LETROZOL FILM-COATED TABLET [Suspect]
     Active Substance: LETROZOLE
     Indication: HER-2 POSITIVE BREAST CANCER
     Dosage: 2.5 MILLIGRAM
     Route: 065
     Dates: start: 20140407, end: 20141107
  28. DOCETAXEL. [Suspect]
     Active Substance: DOCETAXEL
     Dosage: 43 MILLIGRAM, EVERY WEEK
     Route: 042
     Dates: start: 20140310, end: 20140310
  29. TRASTUZUMAB. [Suspect]
     Active Substance: TRASTUZUMAB
     Indication: HER-2 POSITIVE BREAST CANCER
     Dosage: 264 MILLIGRAM, EVERY WEEK
     Route: 042
     Dates: start: 20131227, end: 20131227
  30. TRASTUZUMAB. [Suspect]
     Active Substance: TRASTUZUMAB
     Dosage: 396 MILLIGRAM, EVERY 3 WEEKS
     Route: 042
     Dates: start: 20140613, end: 20141107
  31. PERTUZUMAB. [Suspect]
     Active Substance: PERTUZUMAB
     Indication: HER-2 POSITIVE BREAST CANCER
     Dosage: 420 MILLIGRAM, EVERY WEEK
     Route: 042
     Dates: start: 20140110, end: 20140110
  32. DOCETAXEL. [Suspect]
     Active Substance: DOCETAXEL
     Dosage: 43 MILLIGRAM, EVERY WEEK
     Route: 042
     Dates: start: 20131227, end: 20131227
  33. DOCETAXEL. [Suspect]
     Active Substance: DOCETAXEL
     Dosage: 43 MILLIGRAM/SQ. METER, EVERY WEEK
     Route: 042
     Dates: start: 20140131
  34. TRASTUZUMAB. [Suspect]
     Active Substance: TRASTUZUMAB
     Dosage: 132 MILLIGRAM, EVERY WEEK
     Route: 042
     Dates: start: 20140110
  35. TRASTUZUMAB. [Suspect]
     Active Substance: TRASTUZUMAB
     Dosage: 132 MILLIGRAM, EVERY WEEK
     Route: 042
     Dates: start: 20140303, end: 20140303
  36. TRASTUZUMAB. [Suspect]
     Active Substance: TRASTUZUMAB
     Dosage: 396 MILLIGRAM, EVERY 3 WEEKS
     Route: 042
     Dates: start: 20140411
  37. PERTUZUMAB. [Suspect]
     Active Substance: PERTUZUMAB
     Dosage: 420 MILLIGRAM, EVERY 2 WEEKS
     Route: 042
     Dates: start: 20140117
  38. PERTUZUMAB. [Suspect]
     Active Substance: PERTUZUMAB
     Dosage: 420 MILLIGRAM, EVERY 3 WEEKS
     Route: 042
     Dates: start: 20140224
  39. RANITIC [Concomitant]
     Active Substance: RANITIDINE HYDROCHLORIDE
     Indication: ANAPHYLAXIS PROPHYLAXIS
     Dosage: 1 DOSAGE FORM, EVERY WEEK
     Route: 042
     Dates: start: 20131227, end: 20140404
  40. PANTOPRAZOL [Concomitant]
     Active Substance: PANTOPRAZOLE SODIUM
     Indication: PROPHYLAXIS AGAINST GASTROINTESTINAL ULCER
     Dosage: 1 UNK, ONCE A DAY
     Route: 048

REACTIONS (16)
  - Epistaxis [Recovered/Resolved]
  - Abdominal pain upper [Recovered/Resolved]
  - Fatigue [Recovered/Resolved]
  - Pruritus [Recovered/Resolved]
  - Vitrectomy [Recovered/Resolved]
  - Lymphoedema [Recovered/Resolved]
  - Balance disorder [Recovered/Resolved]
  - Diarrhoea [Recovered/Resolved]
  - Muscle spasms [Recovered/Resolved]
  - Arthralgia [Recovered/Resolved]
  - Visual impairment [Recovered/Resolved]
  - Oral herpes [Recovered/Resolved]
  - Macular hole [Unknown]
  - Back pain [Recovered/Resolved]
  - Tachycardia [Recovered/Resolved]
  - Macular scar [Recovered/Resolved]

NARRATIVE: CASE EVENT DATE: 20140113
